FAERS Safety Report 7474394-7 (Version None)
Quarter: 2011Q2

REPORT INFORMATION
  Report Type: 
  Country: None (occurrence: None)
  Receive Date: 20110512
  Receipt Date: 20110429
  Transmission Date: 20111010
  Serious: Yes (Life-Threatening)
  Sender: FDA-Public Use
  Company Number: TR-BAYER-2011-036642

PATIENT
  Age: 31 Year
  Sex: Female
  Weight: 62 kg

DRUGS (1)
  1. AVELOX [Suspect]
     Indication: ASTHMA
     Dosage: UNK
     Dates: start: 20100101, end: 20100101

REACTIONS (3)
  - DYSPNOEA [None]
  - TACHYCARDIA [None]
  - MENTAL DISORDER [None]
